FAERS Safety Report 8511476-2 (Version None)
Quarter: 2012Q3

REPORT INFORMATION
  Report Type: 
  Country: None (occurrence: None)
  Receive Date: 20120711
  Receipt Date: 20120711
  Transmission Date: 20120928
  Serious: No
  Sender: FDA-Public Use
  Company Number: None

PATIENT
  Age: 62 Year
  Sex: Female
  Weight: 96.1 kg

DRUGS (1)
  1. THYMOGLOBULIN [Suspect]
     Indication: LIVER TRANSPLANT
     Dosage: 150 MG ONCE IV
     Route: 042
     Dates: start: 20120709, end: 20120709

REACTIONS (6)
  - BACK PAIN [None]
  - PALMAR-PLANTAR ERYTHRODYSAESTHESIA SYNDROME [None]
  - RASH ERYTHEMATOUS [None]
  - DIARRHOEA [None]
  - PRURITUS GENITAL [None]
  - NAUSEA [None]
